FAERS Safety Report 4497965-9 (Version None)
Quarter: 2004Q4

REPORT INFORMATION
  Report Type: 
  Country: None (occurrence: None)
  Receive Date: 20041105
  Receipt Date: 20041022
  Transmission Date: 20050328
  Serious: Yes (Other)
  Sender: FDA-Public Use
  Company Number: 2004086675

PATIENT
  Age: 78 Year
  Sex: Female

DRUGS (5)
  1. SUDAFED 12 HOUR [Suspect]
     Dosage: AMT, ORAL
     Route: 048
  2. SERETIDE MITE (FLUTICSONE PROPIONATE, SALMETEROL XINAFOATE) [Suspect]
     Indication: ASTHMA
     Dosage: 4 PUFFS QD LATER REDUCED TO 1 PUFF QD, INHALATION
     Route: 055
     Dates: start: 20000101
  3. FLUTICASONE PROPIONATE [Suspect]
     Indication: ASTHMA
     Dosage: NASAL
     Route: 045
  4. SALMETEROL XINAFOATE (SALMETEROL XINAFOATE) [Suspect]
     Indication: ASTHMA
     Dosage: AMT, INHALATION
     Route: 055
  5. FLUTICASONE PROPIONATE [Suspect]
     Indication: ASTHMA
     Dosage: AMT, INHALATION
     Route: 055

REACTIONS (6)
  - ASTHMA [None]
  - EPISTAXIS [None]
  - FLATULENCE [None]
  - GASTROINTESTINAL DISORDER [None]
  - HYPERTENSION [None]
  - MACULAR DEGENERATION [None]
